FAERS Safety Report 4627400-9 (Version None)
Quarter: 2005Q1

REPORT INFORMATION
  Report Type: 
  Country: None (occurrence: None)
  Receive Date: 20050331
  Receipt Date: 20050323
  Transmission Date: 20050727
  Serious: Yes (Hospitalization)
  Sender: FDA-Public Use
  Company Number: S05-USA-00682-01

PATIENT
  Age: 78 Year
  Sex: Female

DRUGS (12)
  1. LEXAPRO [Suspect]
     Indication: DEPRESSION
     Dosage: 10 MG QD PO
     Route: 048
     Dates: start: 20041201, end: 20041201
  2. LEXAPRO [Suspect]
     Indication: DEPRESSION
     Dosage: 10 MG BID PO
     Route: 048
     Dates: start: 20041201, end: 20050202
  3. LEXAPRO [Suspect]
     Indication: DEPRESSION
     Dosage: 20 MG QD PO
     Route: 048
     Dates: start: 20031201, end: 20041201
  4. FENTANYL [Suspect]
     Indication: ENDOSCOPY
     Dates: start: 20050202, end: 20050202
  5. EFFEXOR [Concomitant]
  6. DEPAKOTE [Concomitant]
  7. ATIVAN [Concomitant]
  8. PROCRIT [Concomitant]
  9. .. [Concomitant]
  10. .. [Concomitant]
  11. .. [Concomitant]
  12. .. [Concomitant]

REACTIONS (9)
  - CAROTID ARTERY ANEURYSM [None]
  - CEREBRAL HAEMORRHAGE [None]
  - CIRCULATORY COLLAPSE [None]
  - CONFUSIONAL STATE [None]
  - DIZZINESS [None]
  - FATIGUE [None]
  - LOSS OF CONSCIOUSNESS [None]
  - PETIT MAL EPILEPSY [None]
  - SUICIDAL IDEATION [None]
